FAERS Safety Report 9250776 (Version 3)
Quarter: 2014Q2

REPORT INFORMATION
  Report Type: Spontaneous
  Country: US (occurrence: US)
  Receive Date: 20130424
  Receipt Date: 20140626
  Transmission Date: 20141212
  Serious: Yes (Hospitalization, Other)
  Sender: FDA-Public Use
  Company Number: US-BAYER-2013-050228

PATIENT
  Age: 42 Year
  Sex: Female
  Weight: 60.77 kg

DRUGS (15)
  1. YAZ [Suspect]
     Indication: UTERINE SPASM
     Dosage: UNK
     Dates: start: 20090224, end: 20100519
  2. YAZ [Suspect]
     Indication: MENORRHAGIA
  3. YAZ [Suspect]
     Indication: CONTRACEPTION
  4. GIANVI [Suspect]
     Indication: CONTRACEPTION
     Dosage: UNK
     Dates: start: 20100616, end: 20110725
  5. GIANVI [Suspect]
     Indication: MENORRHAGIA
  6. GIANVI [Suspect]
     Indication: ABDOMINAL PAIN
  7. CIPROFLOXACIN [Concomitant]
     Dosage: 500 MG, UNK
     Dates: start: 20110515
  8. NITROFURANTOIN [Concomitant]
     Dosage: 100 MG, UNK
     Dates: start: 20110524
  9. MACROBID [Concomitant]
  10. MAXALT [Concomitant]
  11. CYMBALTA [Concomitant]
  12. IMITREX [Concomitant]
  13. CLARITIN [Concomitant]
     Indication: MULTIPLE ALLERGIES
  14. SUDAFED [Concomitant]
     Indication: SINUS DISORDER
  15. LOVENOX [Concomitant]
     Indication: THROMBOPHLEBITIS SUPERFICIAL

REACTIONS (12)
  - Deep vein thrombosis [None]
  - Thrombophlebitis superficial [None]
  - Thrombophlebitis superficial [None]
  - Injury [None]
  - Pain in extremity [None]
  - General physical health deterioration [None]
  - Emotional distress [None]
  - Anxiety [None]
  - Peripheral swelling [None]
  - Feeling hot [None]
  - Insomnia [None]
  - Pain [None]
